FAERS Safety Report 4989760-9 (Version None)
Quarter: 2006Q2

REPORT INFORMATION
  Report Type: 
  Country: None (occurrence: None)
  Receive Date: 20060501
  Receipt Date: 20060423
  Transmission Date: 20061013
  Serious: Yes (Life-Threatening, Disabling)
  Sender: FDA-Public Use
  Company Number: 06H-163-0307800-00

PATIENT
  Age: 57 Year
  Sex: Female

DRUGS (15)
  1. HEPARIN SODIUM INJECTION [Suspect]
     Indication: CATHETER RELATED COMPLICATION
     Dosage: 100 UNIT, INTRAVENOUS
     Route: 042
  2. HEPARIN SODIUM INJECTION [Suspect]
     Indication: PROPHYLAXIS
     Dosage: 100 UNIT, INTRAVENOUS
     Route: 042
  3. ENOXAPARIN SODIUM [Suspect]
     Indication: DRUG USE FOR UNKNOWN INDICATION
     Dosage: 60 + 90 + 40MG, TWO TIMES, SUBCUTANEOUS
     Route: 058
  4. ENOXAPARIN SODIUM [Suspect]
     Indication: THROMBOSIS PROPHYLAXIS
     Dosage: 60 + 90 + 40MG, TWO TIMES, SUBCUTANEOUS
     Route: 058
  5. ANTIBIOTIC (ANTIBIOTICS) [Concomitant]
  6. PREDNISONE TAB [Concomitant]
  7. NAPROXEN [Concomitant]
  8. NITROGLYCERIN [Concomitant]
  9. FLUCONAZOLE [Concomitant]
  10. NYSTATIN [Concomitant]
  11. FAMOTIDINE [Concomitant]
  12. ACETAMINOPHEN [Concomitant]
  13. FENTANYL [Concomitant]
  14. NOREPINEPHRINE BITARTRATE [Concomitant]
  15. FRESH FROZEN PLASMA [Concomitant]

REACTIONS (20)
  - ANURIA [None]
  - CHOLESTASIS [None]
  - COMPUTERISED TOMOGRAM ABNORMAL [None]
  - HAEMODIALYSIS [None]
  - HEPARIN-INDUCED THROMBOCYTOPENIA [None]
  - HEPATIC FAILURE [None]
  - HEPATIC INFARCTION [None]
  - HEPATIC STEATOSIS [None]
  - INFARCTION [None]
  - LIVEDO RETICULARIS [None]
  - MULTI-ORGAN FAILURE [None]
  - PERIPHERAL ISCHAEMIA [None]
  - RALES [None]
  - RENAL FAILURE [None]
  - RENAL INFARCT [None]
  - SEPSIS [None]
  - SHOCK [None]
  - SKIN DISORDER [None]
  - SPLENIC INFARCTION [None]
  - THROMBOSIS [None]
